FAERS Safety Report 21591808 (Version 2)
Quarter: 2022Q4

REPORT INFORMATION
  Report Type: Report from Study
  Country: US (occurrence: US)
  Receive Date: 20221114
  Receipt Date: 20221209
  Transmission Date: 20230113
  Serious: No
  Sender: FDA-Public Use
  Company Number: US-ABBVIE-4136818

PATIENT
  Sex: Female

DRUGS (2)
  1. HUMIRA [Suspect]
     Active Substance: ADALIMUMAB
     Indication: Rheumatoid arthritis
     Route: 059
  2. UNSPECIFIED INGREDIENT [Concomitant]
     Active Substance: UNSPECIFIED INGREDIENT
     Indication: COVID-19 immunisation
     Dosage: 1ST DOSE
     Dates: start: 20210401, end: 20210401

REACTIONS (5)
  - Injection site pain [Recovering/Resolving]
  - Injection site discharge [Unknown]
  - Injection site haemorrhage [Unknown]
  - Injection site urticaria [Recovering/Resolving]
  - Injection site bruising [Recovering/Resolving]
